FAERS Safety Report 4954827-8 (Version None)
Quarter: 2006Q1

REPORT INFORMATION
  Report Type: 
  Country: None (occurrence: None)
  Receive Date: 20060327
  Receipt Date: 20050926
  Transmission Date: 20060701
  Serious: Yes (Death, Other)
  Sender: FDA-Public Use
  Company Number: US-MERCK-0509USA03783

PATIENT
  Age: 54 Year
  Sex: Male
  Weight: 75 kg

DRUGS (5)
  1. VIOXX [Suspect]
     Indication: POLYARTHRITIS
     Route: 048
     Dates: start: 20011001, end: 20020124
  2. VIOXX [Suspect]
     Route: 048
     Dates: start: 20020124, end: 20030926
  3. ASPIRIN [Concomitant]
     Route: 065
  4. ZYBAN [Concomitant]
     Indication: EX-SMOKER
     Route: 065
     Dates: start: 20020101
  5. AMLODIPINE MALEATE [Concomitant]
     Indication: HYPERTENSION
     Route: 065

REACTIONS (16)
  - ACUTE MYOCARDIAL INFARCTION [None]
  - ARTERIOSCLEROSIS CORONARY ARTERY [None]
  - CORONARY ARTERY THROMBOSIS [None]
  - ERECTILE DYSFUNCTION [None]
  - GASTROOESOPHAGEAL REFLUX DISEASE [None]
  - INTERMITTENT CLAUDICATION [None]
  - MELANOCYTIC NAEVUS [None]
  - OSTEOARTHRITIS [None]
  - OSTEONECROSIS [None]
  - PERIPHERAL VASCULAR DISORDER [None]
  - RENAL TUBULAR DISORDER [None]
  - RETINAL ARTERY EMBOLISM [None]
  - RETINAL ARTERY OCCLUSION [None]
  - RETINAL ARTERY THROMBOSIS [None]
  - RHINITIS ALLERGIC [None]
  - WRIST FRACTURE [None]
